FAERS Safety Report 6157276-2 (Version None)
Quarter: 2009Q2

REPORT INFORMATION
  Report Type: 
  Country: None (occurrence: None)
  Receive Date: 20090416
  Receipt Date: 20090406
  Transmission Date: 20091009
  Serious: Yes (Hospitalization)
  Sender: FDA-Public Use
  Company Number: US-BIOGENIDEC-2009BI003820

PATIENT
  Age: 39 Year
  Sex: Female
  Weight: 74 kg

DRUGS (5)
  1. AVONEX [Suspect]
     Indication: MULTIPLE SCLEROSIS
     Route: 030
     Dates: start: 19980101, end: 20030801
  2. AVONEX [Suspect]
     Route: 030
     Dates: start: 20030801
  3. BACLOFEN [Concomitant]
     Indication: PAIN
  4. VITAMIN OTC [Concomitant]
     Indication: ROUTINE HEALTH MAINTENANCE
  5. NITROFURADANTIN [Concomitant]
     Indication: PROPHYLAXIS URINARY TRACT INFECTION

REACTIONS (18)
  - ABASIA [None]
  - ANEURYSMAL BONE CYST [None]
  - ASTHENIA [None]
  - BALANCE DISORDER [None]
  - FOOT FRACTURE [None]
  - HAEMATOMA [None]
  - HEADACHE [None]
  - INJECTION SITE HAEMORRHAGE [None]
  - INJECTION SITE MASS [None]
  - JOINT INJURY [None]
  - MULTIPLE SCLEROSIS RELAPSE [None]
  - MUSCLE SPASTICITY [None]
  - MUSCULOSKELETAL PAIN [None]
  - NUCLEAR MAGNETIC RESONANCE IMAGING ABNORMAL [None]
  - PAIN [None]
  - ROAD TRAFFIC ACCIDENT [None]
  - TREMOR [None]
  - URINARY RETENTION [None]
